FAERS Safety Report 8954947 (Version 1)
Quarter: 2012Q4

REPORT INFORMATION
  Report Type: 
  Country: GB (occurrence: GB)
  Receive Date: 20121207
  Receipt Date: 20121207
  Transmission Date: 20130627
  Serious: Yes (Life-Threatening, Other)
  Sender: FDA-Public Use
  Company Number: GB-ABBOTT-12P-167-1009641-00

PATIENT
  Age: 77 Year
  Sex: Female

DRUGS (8)
  1. IBUPROFEN [Suspect]
     Indication: NECK PAIN
     Dosage: Dosage form unspecified:  400mg TID PRN
     Route: 048
     Dates: start: 1990
  2. SALBUTAMOL [Concomitant]
     Indication: PRODUCT USED FOR UNKNOWN INDICATION
     Route: 055
  3. LOSARTAN [Concomitant]
     Indication: PRODUCT USED FOR UNKNOWN INDICATION
     Route: 048
  4. BENDROFLUAZIDE [Concomitant]
     Indication: PRODUCT USED FOR UNKNOWN INDICATION
     Route: 048
  5. BENDROFLUAZIDE [Concomitant]
     Route: 048
  6. DOXAZOSIN [Concomitant]
     Indication: PRODUCT USED FOR UNKNOWN INDICATION
     Route: 048
  7. BECLOMETHASONE [Concomitant]
     Indication: PRODUCT USED FOR UNKNOWN INDICATION
     Route: 055
  8. BECLOMETHASONE [Concomitant]

REACTIONS (1)
  - Peptic ulcer perforation [Recovering/Resolving]
